FAERS Safety Report 10226934 (Version 1)
Quarter: 2014Q2

REPORT INFORMATION
  Report Type: Spontaneous
  Country: US (occurrence: US)
  Receive Date: 20140610
  Receipt Date: 20140610
  Transmission Date: 20141212
  Serious: No
  Sender: FDA-Public Use
  Company Number: US-TEVA-468161USA

PATIENT
  Sex: Female

DRUGS (1)
  1. QUARTETTE [Suspect]
     Indication: CONTRACEPTION

REACTIONS (2)
  - Menstruation irregular [Unknown]
  - Inappropriate schedule of drug administration [Unknown]
